FAERS Safety Report 6041749-7 (Version None)
Quarter: 2009Q1

REPORT INFORMATION
  Report Type: 
  Country: None (occurrence: None)
  Receive Date: 20090116
  Receipt Date: 20090108
  Transmission Date: 20090719
  Serious: Yes (Other)
  Sender: FDA-Public Use
  Company Number: US-PFIZER INC-2009153433

PATIENT
  Sex: Female
  Weight: 49.4 kg

DRUGS (22)
  1. LIPITOR [Suspect]
     Indication: BLOOD CHOLESTEROL INCREASED
     Dates: end: 20081101
  2. NEURONTIN [Suspect]
  3. RAPAMUNE [Concomitant]
  4. PREDNISONE [Concomitant]
  5. ATENOLOL [Concomitant]
  6. EDECRINE [Concomitant]
  7. ALDACTONE [Concomitant]
  8. CALCITRIOL [Concomitant]
  9. EPOGEN [Concomitant]
  10. ALLOPURINOL [Concomitant]
  11. PRILOSEC [Concomitant]
  12. ESTRACE [Concomitant]
  13. ESTRATEST H.S. [Concomitant]
  14. PROMETRIUM [Concomitant]
  15. FOLIC ACID [Concomitant]
  16. CALCIUM [Concomitant]
  17. MAGNESIUM SULFATE [Concomitant]
  18. MULTI-VITAMINS [Concomitant]
  19. OLOPATADINE HYDROCHLORIDE [Concomitant]
  20. CICLOSPORIN [Concomitant]
  21. SENSIPAR [Concomitant]
  22. HUMALOG [Concomitant]

REACTIONS (10)
  - DRUG INEFFECTIVE [None]
  - EXERCISE TOLERANCE DECREASED [None]
  - GAIT DISTURBANCE [None]
  - IMPAIRED DRIVING ABILITY [None]
  - INSOMNIA [None]
  - MUSCULAR WEAKNESS [None]
  - MYALGIA [None]
  - NEURALGIA [None]
  - PAIN IN EXTREMITY [None]
  - SUICIDAL IDEATION [None]
